FAERS Safety Report 7958901-3 (Version None)
Quarter: 2011Q4

REPORT INFORMATION
  Report Type: 
  Country: None (occurrence: None)
  Receive Date: 20111206
  Receipt Date: 20111128
  Transmission Date: 20120403
  Serious: Yes (Hospitalization)
  Sender: FDA-Public Use
  Company Number: FR-ASTELLAS-2011EU008798

PATIENT
  Sex: Female

DRUGS (2)
  1. PROGRAF [Suspect]
     Indication: TRANSPLANT REJECTION
     Dosage: 1 DF, BID
     Route: 048
     Dates: start: 20111023
  2. TACROLIMUS [Suspect]
     Indication: TRANSPLANT REJECTION
     Dosage: 15 MG, UNKNOWN/D
     Route: 048
     Dates: start: 20111020

REACTIONS (4)
  - OVERDOSE [None]
  - TREMOR [None]
  - HYPERTENSION [None]
  - CONFUSIONAL STATE [None]
